FAERS Safety Report 15016386 (Version 5)
Quarter: 2018Q2

REPORT INFORMATION
  Report Type: Spontaneous
  Country: CA (occurrence: CA)
  Receive Date: 20180615
  Receipt Date: 20180619
  Transmission Date: 20180711
  Serious: Yes (Hospitalization, Other)
  Sender: FDA-Public Use
  Company Number: CA-FERRINGPH-2018FE02999

PATIENT

DRUGS (16)
  1. DOMPERIDONE [Concomitant]
     Active Substance: DOMPERIDONE
  2. IPRATROPIUM [Concomitant]
     Active Substance: IPRATROPIUM
  3. PREDNISONE. [Concomitant]
     Active Substance: PREDNISONE
  4. RABEPRAZOLE [Concomitant]
     Active Substance: RABEPRAZOLE
  5. VASOPRESSIN INJECTION [Concomitant]
     Active Substance: VASOPRESSIN
  6. LEVOTHYROXINE. [Concomitant]
     Active Substance: LEVOTHYROXINE
  7. SYMBICORT [Concomitant]
     Active Substance: BUDESONIDE\FORMOTEROL FUMARATE DIHYDRATE
  8. DESMOPRESSIN [Suspect]
     Active Substance: DESMOPRESSIN
     Dosage: 0.6 MG,
     Route: 048
  9. DICLOFENAC/MISOPROSTOL [Concomitant]
     Active Substance: DICLOFENAC SODIUM\MISOPROSTOL
  10. DESMOPRESSIN [Suspect]
     Active Substance: DESMOPRESSIN
     Dosage: 0.8 MG, 3 TIMES DAILY
     Route: 048
  11. HYDROMORPHONE [Suspect]
     Active Substance: HYDROMORPHONE
     Dosage: UNK
     Route: 065
  12. HYDROCORTISONE. [Concomitant]
     Active Substance: HYDROCORTISONE
  13. DESMOPRESSIN [Suspect]
     Active Substance: DESMOPRESSIN
     Indication: PRODUCT USED FOR UNKNOWN INDICATION
     Dosage: 10 ?G, Q4H
     Route: 045
  14. HYDROMORPHONE [Suspect]
     Active Substance: HYDROMORPHONE
     Indication: PAIN
     Route: 058
  15. SALBUTAMOL [Concomitant]
     Active Substance: ALBUTEROL
  16. DESMOPRESSIN [Suspect]
     Active Substance: DESMOPRESSIN
     Indication: PRODUCT USED FOR UNKNOWN INDICATION
     Dosage: 0.4 MG,
     Route: 048

REACTIONS (2)
  - Hyponatraemia [Unknown]
  - Drug interaction [Unknown]
